FAERS Safety Report 8127716-8 (Version None)
Quarter: 2012Q1

REPORT INFORMATION
  Report Type: 
  Country: None (occurrence: None)
  Receive Date: 20120210
  Receipt Date: 20120203
  Transmission Date: 20120608
  Serious: Yes (Other)
  Sender: FDA-Public Use
  Company Number: NL-ABBOTT-12P-114-0902012-00

PATIENT
  Age: 43 Year
  Sex: Male

DRUGS (6)
  1. DEPAKENE [Suspect]
     Indication: BIPOLAR I DISORDER
     Dosage: 1000MG (EXTENDED RELEASE), TWICE A DAY
     Route: 048
     Dates: start: 20100825
  2. PIPAMPERONE [Suspect]
     Indication: BIPOLAR I DISORDER
     Route: 048
     Dates: start: 20080101
  3. FLUTICASONE PROPIONATE [Concomitant]
     Indication: PRODUCT USED FOR UNKNOWN INDICATION
     Dates: start: 20100101
  4. METHYLPHENIDATE HCL [Suspect]
     Indication: ATTENTION DEFICIT/HYPERACTIVITY DISORDER
     Route: 048
     Dates: start: 20100101
  5. IPRATROPIUM BROMIDE W/SALBUTAMOL SULFATE [Concomitant]
     Indication: PRODUCT USED FOR UNKNOWN INDICATION
     Dates: start: 20100101
  6. METHYLPHENIDATE HCL [Suspect]
     Indication: PSYCHOMOTOR HYPERACTIVITY

REACTIONS (5)
  - ABSCESS [None]
  - UNRESPONSIVE TO STIMULI [None]
  - SUICIDAL IDEATION [None]
  - PALPITATIONS [None]
  - INCREASED APPETITE [None]
